FAERS Safety Report 7780395-1 (Version None)
Quarter: 2011Q3

REPORT INFORMATION
  Report Type: 
  Country: None (occurrence: None)
  Receive Date: 20110927
  Receipt Date: 20110916
  Transmission Date: 20111222
  Serious: Yes (Disabling, Other)
  Sender: FDA-Public Use
  Company Number: DE-SANOFI-AVENTIS-2010SA050121

PATIENT
  Age: 42 Year
  Sex: Male
  Weight: 147 kg

DRUGS (5)
  1. DICLOFENAC [Suspect]
     Route: 065
  2. IBUPROFEN [Suspect]
     Route: 065
  3. CHOLESTEROL- AND TRIGLYCERIDE REDUCERS [Concomitant]
  4. FEXOFENADINE HCL [Suspect]
     Route: 048
  5. ANTIHYPERTENSIVES [Concomitant]

REACTIONS (13)
  - PERFORMANCE STATUS DECREASED [None]
  - SPLEEN DISORDER [None]
  - CHONDROLYSIS [None]
  - LIVER DISORDER [None]
  - BLOOD PRESSURE INCREASED [None]
  - MEMORY IMPAIRMENT [None]
  - UNEVALUABLE EVENT [None]
  - DIABETES MELLITUS [None]
  - ARTHRALGIA [None]
  - INTRAOCULAR PRESSURE INCREASED [None]
  - METABOLIC DISORDER [None]
  - VISUAL IMPAIRMENT [None]
  - LIBIDO DECREASED [None]
